FAERS Safety Report 13784516 (Version 3)
Quarter: 2018Q1

REPORT INFORMATION
  Report Type: Spontaneous
  Country: US (occurrence: US)
  Receive Date: 20170724
  Receipt Date: 20180123
  Transmission Date: 20180508
  Serious: No
  Sender: FDA-Public Use
  Company Number: US-IMPAX LABORATORIES, INC-2017-IPXL-01208

PATIENT
  Age: 69 Year
  Sex: Male
  Weight: 63 kg

DRUGS (12)
  1. CARBIDOPA/LEVODOPA [Concomitant]
     Active Substance: CARBIDOPA\LEVODOPA
     Indication: PARKINSON^S DISEASE
     Dosage: 25/100 MG, 2 /DAY
     Route: 065
     Dates: end: 2017
  2. RYTARY [Suspect]
     Active Substance: CARBIDOPA\LEVODOPA
     Dosage: 36.25/145 MG, 1 OR 2 CAPSULES A DAY
     Route: 048
     Dates: start: 2017, end: 2017
  3. CARBIDOPA/LEVODOPA [Concomitant]
     Active Substance: CARBIDOPA\LEVODOPA
     Dosage: CUTTING BACK, UNK
     Route: 065
     Dates: start: 2017
  4. MIRAPEX [Concomitant]
     Active Substance: PRAMIPEXOLE DIHYDROCHLORIDE
     Indication: PARKINSON^S DISEASE
     Dosage: 1.5 MG, UNK
     Route: 065
  5. RYTARY [Suspect]
     Active Substance: CARBIDOPA\LEVODOPA
     Dosage: 48.75/195MG, 3 CAPSULES 6 TIMES DAILY)
     Route: 048
  6. LISINOPRIL. [Concomitant]
     Active Substance: LISINOPRIL
     Indication: HYPERTENSION
     Dosage: 10 MG, HALF A TABLET
     Route: 065
  7. RYTARY [Suspect]
     Active Substance: CARBIDOPA\LEVODOPA
     Dosage: 48.75/195 MG, 1 CAPSULE 5 /DAY
     Route: 048
     Dates: start: 20170417, end: 201704
  8. RYTARY [Suspect]
     Active Substance: CARBIDOPA\LEVODOPA
     Dosage: 36.25/145 MG, 2 CAPSULES
     Route: 048
     Dates: start: 2017
  9. RYTARY [Suspect]
     Active Substance: CARBIDOPA\LEVODOPA
     Indication: PARKINSON^S DISEASE
     Dosage: 36.25/145 MG, 1 CAPSULE, 4 TIMES DAILY AND 2 CAPSULES AT BEDTIME
     Route: 048
     Dates: start: 201704, end: 2017
  10. RYTARY [Suspect]
     Active Substance: CARBIDOPA\LEVODOPA
     Dosage: 48.75/195 MG, 1 CAPSULE AT 6:30 AM, 9:30 AM, AND 12:20 PM
     Route: 048
     Dates: start: 201704, end: 201704
  11. ENTACAPONE. [Concomitant]
     Active Substance: ENTACAPONE
     Indication: PARKINSON^S DISEASE
     Dosage: 200 MG, 2 /DAY
     Route: 065
     Dates: start: 2017, end: 2017
  12. ENTACAPONE. [Concomitant]
     Active Substance: ENTACAPONE
     Dosage: CUTTING BACK, UNK
     Route: 065
     Dates: start: 2017

REACTIONS (4)
  - Dizziness [Recovered/Resolved]
  - Drug ineffective [Recovering/Resolving]
  - Prescribed overdose [Unknown]
  - Intentional underdose [Unknown]

NARRATIVE: CASE EVENT DATE: 201704
